FAERS Safety Report 20163328 (Version 1)
Quarter: 2021Q4

REPORT INFORMATION
  Report Type: Spontaneous
  Country: JP (occurrence: JP)
  Receive Date: 20211209
  Receipt Date: 20211209
  Transmission Date: 20220303
  Serious: Yes (Death, Hospitalization, Other)
  Sender: FDA-Public Use
  Company Number: JP-ORG100014127-2021001492

PATIENT
  Age: 70 Year
  Sex: Male

DRUGS (2)
  1. METYRAPONE [Suspect]
     Active Substance: METYRAPONE
     Dosage: 03-04 DAYS OF TREATMENT
     Route: 048
  2. ST mixutre [Concomitant]
     Dosage: UNK
     Route: 065

REACTIONS (1)
  - Pneumocystis jirovecii pneumonia [Fatal]
